FAERS Safety Report 23679776 (Version 1)
Quarter: 2024Q1

REPORT INFORMATION
  Report Type: Spontaneous
  Country: US (occurrence: US)
  Receive Date: 20240327
  Receipt Date: 20240327
  Transmission Date: 20240409
  Serious: Yes (Hospitalization)
  Sender: FDA-Public Use
  Company Number: US-ABBVIE-5691618

PATIENT
  Sex: Female
  Weight: 82 kg

DRUGS (3)
  1. BOTOX COSMETIC [Suspect]
     Active Substance: ONABOTULINUMTOXINA
     Indication: Skin wrinkling
     Dosage: TIME INTERVAL: AS NECESSARY: 60 OR MORE UNITS
     Route: 065
     Dates: start: 2019, end: 2019
  2. BOTOX COSMETIC [Suspect]
     Active Substance: ONABOTULINUMTOXINA
     Indication: Skin wrinkling
     Dosage: TIME INTERVAL: AS NECESSARY: 60 OR MORE UNITS
     Route: 065
     Dates: start: 2019, end: 2019
  3. ARMOUR THYROID [Concomitant]
     Active Substance: THYROID, PORCINE
     Indication: Hypothyroidism

REACTIONS (5)
  - Eye irritation [Recovered/Resolved]
  - Cough [Recovered/Resolved]
  - Mephisto sign [Unknown]
  - Chest pain [Recovered/Resolved]
  - Sputum discoloured [Unknown]

NARRATIVE: CASE EVENT DATE: 20190101
